FAERS Safety Report 5409657-X (Version None)
Quarter: 2007Q3

REPORT INFORMATION
  Report Type: 
  Country: None (occurrence: None)
  Receive Date: 20070808
  Receipt Date: 20070808
  Transmission Date: 20080115
  Serious: Yes (Death, Life-Threatening, Hospitalization)
  Sender: FDA-Public Use
  Company Number: None

PATIENT
  Sex: Female

DRUGS (1)
  1. COUMADIN [Suspect]
     Dosage: 8 MG DAILY

REACTIONS (3)
  - INTERNATIONAL NORMALISED RATIO INCREASED [None]
  - SUBDURAL HAEMORRHAGE [None]
  - UNRESPONSIVE TO STIMULI [None]
